FAERS Safety Report 5395967-1 (Version None)
Quarter: 2007Q3

REPORT INFORMATION
  Report Type: 
  Country: None (occurrence: None)
  Receive Date: 20070724
  Receipt Date: 20070712
  Transmission Date: 20080115
  Serious: Yes (Hospitalization, Other)
  Sender: FDA-Public Use
  Company Number: US-PFIZER INC-2007058080

PATIENT
  Sex: Female
  Weight: 54.4 kg

DRUGS (2)
  1. CELEBREX [Suspect]
     Indication: BACK PAIN
     Dates: start: 20010101, end: 20020101
  2. BEXTRA [Suspect]
     Indication: BACK PAIN
     Dates: start: 20020408, end: 20030608

REACTIONS (2)
  - MYOCARDIAL INFARCTION [None]
  - URTICARIA [None]
